FAERS Safety Report 8961541 (Version 2)
Quarter: 2013Q2

REPORT INFORMATION
  Report Type: Spontaneous
  Country: US (occurrence: US)
  Receive Date: 20121213
  Receipt Date: 20130430
  Transmission Date: 20140414
  Serious: Yes (Hospitalization)
  Sender: FDA-Public Use
  Company Number: US-BAYER-2012-129883

PATIENT
  Age: 34 Year
  Sex: Female

DRUGS (12)
  1. GIANVI [Suspect]
  2. YAZ [Suspect]
  3. ALPRAZOLAM [Concomitant]
     Dosage: 0.25 MG,? TABLET, BID AS NEEDED
     Route: 048
  4. FLUOXETINE [Concomitant]
     Dosage: 40 MG, QD 1 CAPSULE EVERY MORNING
     Route: 048
  5. AZITHROMYCIN [Concomitant]
     Dosage: 250 MG, UNK
     Route: 048
     Dates: start: 20110924
  6. LORTAB [Concomitant]
     Dosage: 325 MG, EVERY 6
     Route: 048
     Dates: start: 20110924
  7. NEURONTIN [Concomitant]
     Dosage: 600 MG, BID
     Route: 048
     Dates: start: 20110924
  8. PROZAC [Concomitant]
     Dosage: 40 MG, DAILY
     Route: 048
     Dates: start: 20110924
  9. IBUPROFEN [Concomitant]
  10. MORPHINE [Concomitant]
  11. MOTRIN [Concomitant]
  12. PROTONIX [Concomitant]

REACTIONS (1)
  - Thrombophlebitis superficial [None]
